FAERS Safety Report 21297233 (Version 1)
Quarter: 2022Q3

REPORT INFORMATION
  Report Type: Spontaneous
  Country: US (occurrence: US)
  Receive Date: 20220906
  Receipt Date: 20220906
  Transmission Date: 20221026
  Serious: No
  Sender: FDA-Public Use
  Company Number: US-TAKEDA-2022TUS059991

PATIENT
  Sex: Male
  Weight: 66 kg

DRUGS (2)
  1. VELCADE [Suspect]
     Active Substance: BORTEZOMIB
     Indication: Plasma cell myeloma
     Dosage: 2.2 MILLIGRAM, 1/WEEK
     Route: 065
     Dates: start: 20220518
  2. REVLIMID [Concomitant]
     Active Substance: LENALIDOMIDE
     Dosage: UNK
     Route: 065

REACTIONS (6)
  - Hordeolum [Unknown]
  - Eye infection [Unknown]
  - Swelling of eyelid [Unknown]
  - Pustule [Unknown]
  - Staphylococcal infection [Unknown]
  - White blood cell count increased [Unknown]
